FAERS Safety Report 12080449 (Version 3)
Quarter: 2016Q2

REPORT INFORMATION
  Report Type: Spontaneous
  Country: CA (occurrence: CA)
  Receive Date: 20160216
  Receipt Date: 20160602
  Transmission Date: 20160815
  Serious: Yes (Death, Hospitalization)
  Sender: FDA-Public Use
  Company Number: CA-ACTAVIS-2016-02816

PATIENT
  Age: 14 Month
  Sex: Female

DRUGS (6)
  1. TENIPOSIDE. [Suspect]
     Active Substance: TENIPOSIDE
     Indication: NEUROBLASTOMA
     Dosage: SPECIFIC PROTOCOL FOR THE TREATMENT OF NEUROBLASTOMA
     Route: 065
  2. DOXORUBICIN (UNKNOWN) [Suspect]
     Active Substance: DOXORUBICIN
     Dosage: EMPIRIC CHEMOTHERAPY
     Route: 065
  3. VINCRISTINE (UNKNOWN) [Suspect]
     Active Substance: VINCRISTINE
     Indication: NEUROBLASTOMA
     Dosage: SPECIFIC PROTOCOL FOR THE TREATMENT OF NEUROBLASTOMA
     Route: 065
  4. CYCLOPHOSPHAMIDE. [Suspect]
     Active Substance: CYCLOPHOSPHAMIDE
     Indication: NEUROBLASTOMA
     Dosage: SPECIFIC PROTOCOL FOR THE TREATMENT OF NEUROBLASTOMA
     Route: 065
  5. DOXORUBICIN (UNKNOWN) [Suspect]
     Active Substance: DOXORUBICIN
     Indication: NEUROBLASTOMA
     Dosage: SPECIFIC PROTOCOL FOR THE TREATMENT OF NEUROBLASTOMA
     Route: 065
  6. VINCRISTINE (UNKNOWN) [Suspect]
     Active Substance: VINCRISTINE
     Dosage: EMPIRIC CHEMOTHERAPY
     Route: 065

REACTIONS (2)
  - Histiocytosis haematophagic [Fatal]
  - Pyrexia [Unknown]
